FAERS Safety Report 10862237 (Version 1)
Quarter: 2015Q1

REPORT INFORMATION
  Report Type: Spontaneous
  Country: IE (occurrence: None)
  Receive Date: 20150219
  Receipt Date: 20150219
  Transmission Date: 20150721
  Serious: Yes (Other)
  Sender: FDA-Public Use
  Company Number: IE2015GSK021208

PATIENT
  Sex: Female
  Weight: 2 kg

DRUGS (5)
  1. GANCICLOVIR. [Suspect]
     Active Substance: GANCICLOVIR
     Indication: HIV INFECTION
     Route: 064
  2. ATAZANAVIR (ATAZANAVIR) [Suspect]
     Active Substance: ATAZANAVIR
     Indication: HIV INFECTION
     Route: 064
  3. RITONAVIR (RITONAVIR) [Suspect]
     Active Substance: RITONAVIR
     Indication: HIV INFECTION
  4. ZIDOVUDINE+LAMIVUDINE [Suspect]
     Active Substance: LAMIVUDINE\ZIDOVUDINE
     Indication: HIV INFECTION
     Route: 064
  5. EMTRICITABINE/TENOFOVIR DISOPROXIL FUMARATE [Suspect]
     Active Substance: EMTRICITABINE\TENOFOVIR DISOPROXIL
     Indication: HIV INFECTION

REACTIONS (4)
  - Foetal growth restriction [None]
  - Pericardial effusion [None]
  - Maternal drugs affecting foetus [None]
  - Right ventricular hypertrophy [None]
